FAERS Safety Report 17815743 (Version 1)
Quarter: 2020Q2

REPORT INFORMATION
  Report Type: Other
  Country: CA (occurrence: CA)
  Receive Date: 20200522
  Receipt Date: 20200522
  Transmission Date: 20200714
  Serious: Yes (Hospitalization)
  Sender: FDA-Public Use
  Company Number: CA-PFIZER INC-2020202570

PATIENT
  Age: 37 Year
  Sex: Male

DRUGS (3)
  1. ATORVASTATIN CALCIUM. [Suspect]
     Active Substance: ATORVASTATIN CALCIUM
     Dosage: 600 MG
     Route: 065
  2. GLUMETZA [Suspect]
     Active Substance: METFORMIN HYDROCHLORIDE
     Dosage: 45000 MG
     Route: 048
  3. GLYBURIDE. [Suspect]
     Active Substance: GLYBURIDE
     Dosage: 150 MG
     Route: 065

REACTIONS (8)
  - Intentional overdose [Unknown]
  - Acute kidney injury [Unknown]
  - Lactic acidosis [Unknown]
  - Bradycardia [Unknown]
  - Hypotension [Unknown]
  - Respiratory failure [Unknown]
  - Hypoglycaemia [Unknown]
  - Ventricular tachycardia [Unknown]
